FAERS Safety Report 13877100 (Version 3)
Quarter: 2017Q3

REPORT INFORMATION
  Report Type: Spontaneous
  Country: IT (occurrence: IT)
  Receive Date: 20170817
  Receipt Date: 20170918
  Transmission Date: 20171127
  Serious: Yes (Hospitalization, Other)
  Sender: FDA-Public Use
  Company Number: IT-GLAXOSMITHKLINE-IT2017GSK126373

PATIENT
  Age: 80 Year
  Sex: Male

DRUGS (4)
  1. VOLTFAST [Suspect]
     Active Substance: DICLOFENAC POTASSIUM
     Indication: BACK PAIN
     Dosage: 50 MG, QD
     Route: 048
     Dates: start: 20170614, end: 20170714
  2. AUGMENTIN [Concomitant]
     Active Substance: AMOXICILLIN\CLAVULANATE POTASSIUM
     Dosage: UNK
     Dates: start: 20170712, end: 20170714
  3. FUROSEMIDE. [Concomitant]
     Active Substance: FUROSEMIDE
  4. FLUIBRON [Concomitant]
     Active Substance: AMBROXOL HYDROCHLORIDE
     Dosage: 15/5 MG/ML
     Dates: start: 20170712, end: 20170714

REACTIONS (6)
  - Gastroduodenal ulcer [Recovering/Resolving]
  - Melaena [Unknown]
  - Ulcer [Unknown]
  - Gastritis erosive [Unknown]
  - Gastric haemorrhage [Unknown]
  - Anaemia [Unknown]

NARRATIVE: CASE EVENT DATE: 20170714
